FAERS Safety Report 11033952 (Version 2)
Quarter: 2015Q2

REPORT INFORMATION
  Report Type: Spontaneous
  Country: US (occurrence: US)
  Receive Date: 20150415
  Receipt Date: 20150525
  Transmission Date: 20150821
  Serious: Yes (Other)
  Sender: FDA-Public Use
  Company Number: US-JNJFOC-20130805961

PATIENT
  Age: 60 Year
  Sex: Female
  Weight: 65.77 kg

DRUGS (4)
  1. TENORMIN [Concomitant]
     Active Substance: ATENOLOL
     Indication: TACHYCARDIA
     Route: 065
     Dates: start: 1990
  2. LISINOPRIL. [Concomitant]
     Active Substance: LISINOPRIL
     Indication: BLOOD PRESSURE
     Route: 065
     Dates: start: 1990
  3. XARELTO [Suspect]
     Active Substance: RIVAROXABAN
     Indication: PULMONARY EMBOLISM
     Route: 048
     Dates: start: 20130802, end: 201308
  4. ATENOLOL. [Concomitant]
     Active Substance: ATENOLOL
     Indication: TACHYCARDIA
     Route: 065
     Dates: start: 1990

REACTIONS (5)
  - Mouth haemorrhage [Not Recovered/Not Resolved]
  - Skin haemorrhage [Not Recovered/Not Resolved]
  - Incorrect dose administered [Unknown]
  - Rectal haemorrhage [Not Recovered/Not Resolved]
  - Epistaxis [Not Recovered/Not Resolved]

NARRATIVE: CASE EVENT DATE: 201308
